FAERS Safety Report 23270703 (Version 1)
Quarter: 2023Q4

REPORT INFORMATION
  Report Type: Report from Study
  Country: NO (occurrence: None)
  Receive Date: 20231207
  Receipt Date: 20231207
  Transmission Date: 20240110
  Serious: Yes (Death, Hospitalization)
  Sender: FDA-Public Use
  Company Number: NO-ROCHE-3469645

PATIENT
  Age: 71 Year
  Sex: Female

DRUGS (12)
  1. PERTUZUMAB\TRASTUZUMAB [Suspect]
     Active Substance: PERTUZUMAB\TRASTUZUMAB
     Indication: Neoplasm malignant
     Dosage: 1200/600 MG
     Route: 065
     Dates: start: 20230908
  2. PERTUZUMAB\TRASTUZUMAB [Suspect]
     Active Substance: PERTUZUMAB\TRASTUZUMAB
     Dosage: 600/600 MG
     Route: 065
     Dates: start: 20231006
  3. PERTUZUMAB\TRASTUZUMAB [Suspect]
     Active Substance: PERTUZUMAB\TRASTUZUMAB
     Dosage: 600/600 MG
     Route: 065
     Dates: start: 20231027
  4. CETIRIZINE HYDROCHLORIDE [Concomitant]
     Active Substance: CETIRIZINE HYDROCHLORIDE
  5. POTASSIUM CHLORIDE [Concomitant]
     Active Substance: POTASSIUM CHLORIDE
     Indication: Hypokalaemia
  6. CREON [Concomitant]
     Active Substance: PANCRELIPASE AMYLASE\PANCRELIPASE LIPASE\PANCRELIPASE PROTEASE
     Indication: Pancreatic carcinoma
     Dates: start: 20230207
  7. METOCLOPRAMIDE HYDROCHLORIDE [Concomitant]
     Active Substance: METOCLOPRAMIDE HYDROCHLORIDE
     Indication: Nausea
  8. PREDNISOLONE [Concomitant]
     Active Substance: PREDNISOLONE
  9. TRIMETHOPRIM [Concomitant]
     Active Substance: TRIMETHOPRIM
     Dates: start: 20231006
  10. HIPREX (NORWAY) [Concomitant]
     Dates: start: 20230921
  11. NYCOPLUS MAGNESIUM [Concomitant]
     Indication: Hypomagnesaemia
     Dates: start: 20230908
  12. CEFOTAXIME [Concomitant]
     Active Substance: CEFOTAXIME SODIUM
     Indication: Infection
     Dates: start: 20231105, end: 20231108

REACTIONS (2)
  - Urinary tract infection [Recovered/Resolved]
  - Infection [Fatal]

NARRATIVE: CASE EVENT DATE: 20230916
